FAERS Safety Report 9281290 (Version 1)
Quarter: 2013Q2

REPORT INFORMATION
  Report Type: Spontaneous
  Country: US (occurrence: US)
  Receive Date: 20130509
  Receipt Date: 20130509
  Transmission Date: 20140414
  Serious: Yes (Hospitalization)
  Sender: FDA-Public Use
  Company Number: US-BAYER-2013-055462

PATIENT
  Age: 61 Year
  Sex: Female

DRUGS (6)
  1. ACETYLSALICYLIC ACID [Suspect]
     Indication: BACK PAIN
     Dosage: 4 325-MG TABLETS, Q2HR
  2. ADDERALL [Concomitant]
     Dosage: 15 MG, TID
  3. EFFEXOR XR [Concomitant]
     Dosage: 75 MG, TID
  4. TOPROL XL [Concomitant]
     Dosage: 50 MG, BID
  5. ALBUTEROL SULFATE [Concomitant]
     Dosage: 2 PUFFS UP TO FOUR TIMES DAILY
     Route: 055
  6. LORATADINE [Concomitant]
     Dosage: DAILY DOSE 10 MG

REACTIONS (7)
  - Toxicity to various agents [None]
  - Nausea [None]
  - Tinnitus [None]
  - Balance disorder [None]
  - Tachypnoea [None]
  - Overdose [None]
  - Drug ineffective [None]
